FAERS Safety Report 19056254 (Version 2)
Quarter: 2021Q4

REPORT INFORMATION
  Report Type: Spontaneous
  Country: GB (occurrence: GB)
  Receive Date: 20210325
  Receipt Date: 20211028
  Transmission Date: 20220304
  Serious: Yes (Disabling, Other)
  Sender: FDA-Public Use
  Company Number: None

PATIENT
  Age: 42 Year
  Sex: Male
  Weight: 78 kg

DRUGS (1)
  1. ESCITALOPRAM [Suspect]
     Active Substance: ESCITALOPRAM OXALATE
     Indication: Depression
     Dosage: 10 MILLIGRAM
     Route: 048
     Dates: start: 20200916, end: 20201203

REACTIONS (5)
  - Libido decreased [Unknown]
  - Hypoaesthesia [Unknown]
  - Sensory loss [Unknown]
  - Orgasm abnormal [Unknown]
  - Erectile dysfunction [Unknown]
